FAERS Safety Report 9827182 (Version 1)
Quarter: 2014Q1

REPORT INFORMATION
  Report Type: Spontaneous
  Country: US (occurrence: US)
  Receive Date: 20140117
  Receipt Date: 20140117
  Transmission Date: 20141002
  Serious: No
  Sender: FDA-Public Use
  Company Number: US-GLAXOSMITHKLINE-A1044971A

PATIENT
  Age: 50 Year
  Sex: Male

DRUGS (1)
  1. PROMACTA [Suspect]
     Indication: PLATELET COUNT DECREASED
     Route: 065
     Dates: start: 20130510

REACTIONS (4)
  - Abdominal pain upper [Unknown]
  - Discomfort [Unknown]
  - Nausea [Unknown]
  - Asthenia [Unknown]
